FAERS Safety Report 19629351 (Version 3)
Quarter: 2022Q1

REPORT INFORMATION
  Report Type: Report from Study
  Country: DE (occurrence: DE)
  Receive Date: 20210728
  Receipt Date: 20220208
  Transmission Date: 20220423
  Serious: Yes (Hospitalization, Other)
  Sender: FDA-Public Use
  Company Number: DE-TAKEDA-DE201818435

PATIENT
  Sex: Male
  Weight: 78 kg

DRUGS (83)
  1. TEDUGLUTIDE [Suspect]
     Active Substance: TEDUGLUTIDE
     Indication: Short-bowel syndrome
     Dosage: 0.05 MILLIGRAM/KILOGRAM, QD
     Route: 065
     Dates: start: 20150511, end: 20150911
  2. TEDUGLUTIDE [Suspect]
     Active Substance: TEDUGLUTIDE
     Indication: Short-bowel syndrome
     Dosage: 0.05 MILLIGRAM/KILOGRAM, QD
     Route: 065
     Dates: start: 20150511, end: 20150911
  3. TEDUGLUTIDE [Suspect]
     Active Substance: TEDUGLUTIDE
     Indication: Short-bowel syndrome
     Dosage: 0.05 MILLIGRAM/KILOGRAM, QD
     Route: 065
     Dates: start: 20150511, end: 20150911
  4. TEDUGLUTIDE [Suspect]
     Active Substance: TEDUGLUTIDE
     Indication: Short-bowel syndrome
     Dosage: 0.05 MILLIGRAM/KILOGRAM, QD
     Route: 065
     Dates: start: 20150511, end: 20150911
  5. TEDUGLUTIDE [Suspect]
     Active Substance: TEDUGLUTIDE
     Dosage: 0.03 MILLIGRAM/KILOGRAM, 4/WEEK
     Route: 065
     Dates: start: 20150918, end: 20150924
  6. TEDUGLUTIDE [Suspect]
     Active Substance: TEDUGLUTIDE
     Dosage: 0.03 MILLIGRAM/KILOGRAM, 4/WEEK
     Route: 065
     Dates: start: 20150918, end: 20150924
  7. TEDUGLUTIDE [Suspect]
     Active Substance: TEDUGLUTIDE
     Dosage: 0.03 MILLIGRAM/KILOGRAM, 4/WEEK
     Route: 065
     Dates: start: 20150918, end: 20150924
  8. TEDUGLUTIDE [Suspect]
     Active Substance: TEDUGLUTIDE
     Dosage: 0.03 MILLIGRAM/KILOGRAM, 4/WEEK
     Route: 065
     Dates: start: 20150918, end: 20150924
  9. TEDUGLUTIDE [Suspect]
     Active Substance: TEDUGLUTIDE
     Dosage: 0.03 MILLIGRAM/KILOGRAM, 3/WEEK
     Route: 065
     Dates: start: 20150925, end: 20151001
  10. TEDUGLUTIDE [Suspect]
     Active Substance: TEDUGLUTIDE
     Dosage: 0.03 MILLIGRAM/KILOGRAM, 3/WEEK
     Route: 065
     Dates: start: 20150925, end: 20151001
  11. TEDUGLUTIDE [Suspect]
     Active Substance: TEDUGLUTIDE
     Dosage: 0.03 MILLIGRAM/KILOGRAM, 3/WEEK
     Route: 065
     Dates: start: 20150925, end: 20151001
  12. TEDUGLUTIDE [Suspect]
     Active Substance: TEDUGLUTIDE
     Dosage: 0.03 MILLIGRAM/KILOGRAM, 3/WEEK
     Route: 065
     Dates: start: 20150925, end: 20151001
  13. TEDUGLUTIDE [Suspect]
     Active Substance: TEDUGLUTIDE
     Dosage: 0.03 MILLIGRAM/KILOGRAM, 4/WEEK
     Route: 065
     Dates: start: 20151002, end: 20151008
  14. TEDUGLUTIDE [Suspect]
     Active Substance: TEDUGLUTIDE
     Dosage: 0.03 MILLIGRAM/KILOGRAM, 4/WEEK
     Route: 065
     Dates: start: 20151002, end: 20151008
  15. TEDUGLUTIDE [Suspect]
     Active Substance: TEDUGLUTIDE
     Dosage: 0.03 MILLIGRAM/KILOGRAM, 4/WEEK
     Route: 065
     Dates: start: 20151002, end: 20151008
  16. TEDUGLUTIDE [Suspect]
     Active Substance: TEDUGLUTIDE
     Dosage: 0.03 MILLIGRAM/KILOGRAM, 4/WEEK
     Route: 065
     Dates: start: 20151002, end: 20151008
  17. TEDUGLUTIDE [Suspect]
     Active Substance: TEDUGLUTIDE
     Dosage: 0.03 MILLIGRAM/KILOGRAM, 4/WEEK
     Route: 065
     Dates: start: 20151009, end: 20151015
  18. TEDUGLUTIDE [Suspect]
     Active Substance: TEDUGLUTIDE
     Dosage: 0.03 MILLIGRAM/KILOGRAM, 4/WEEK
     Route: 065
     Dates: start: 20151009, end: 20151015
  19. TEDUGLUTIDE [Suspect]
     Active Substance: TEDUGLUTIDE
     Dosage: 0.03 MILLIGRAM/KILOGRAM, 4/WEEK
     Route: 065
     Dates: start: 20151009, end: 20151015
  20. TEDUGLUTIDE [Suspect]
     Active Substance: TEDUGLUTIDE
     Dosage: 0.03 MILLIGRAM/KILOGRAM, 4/WEEK
     Route: 065
     Dates: start: 20151009, end: 20151015
  21. TEDUGLUTIDE [Suspect]
     Active Substance: TEDUGLUTIDE
     Dosage: 0.03 MILLIGRAM/KILOGRAM, QD
     Route: 065
     Dates: start: 20151016, end: 201604
  22. TEDUGLUTIDE [Suspect]
     Active Substance: TEDUGLUTIDE
     Dosage: 0.03 MILLIGRAM/KILOGRAM, QD
     Route: 065
     Dates: start: 20151016, end: 201604
  23. TEDUGLUTIDE [Suspect]
     Active Substance: TEDUGLUTIDE
     Dosage: 0.03 MILLIGRAM/KILOGRAM, QD
     Route: 065
     Dates: start: 20151016, end: 201604
  24. TEDUGLUTIDE [Suspect]
     Active Substance: TEDUGLUTIDE
     Dosage: 0.03 MILLIGRAM/KILOGRAM, QD
     Route: 065
     Dates: start: 20151016, end: 201604
  25. TEDUGLUTIDE [Suspect]
     Active Substance: TEDUGLUTIDE
     Dosage: 0.03 MILLIGRAM/KILOGRAM
     Route: 065
     Dates: start: 20160419, end: 20161026
  26. TEDUGLUTIDE [Suspect]
     Active Substance: TEDUGLUTIDE
     Dosage: 0.03 MILLIGRAM/KILOGRAM
     Route: 065
     Dates: start: 20160419, end: 20161026
  27. TEDUGLUTIDE [Suspect]
     Active Substance: TEDUGLUTIDE
     Dosage: 0.03 MILLIGRAM/KILOGRAM
     Route: 065
     Dates: start: 20160419, end: 20161026
  28. TEDUGLUTIDE [Suspect]
     Active Substance: TEDUGLUTIDE
     Dosage: 0.03 MILLIGRAM/KILOGRAM
     Route: 065
     Dates: start: 20160419, end: 20161026
  29. TEDUGLUTIDE [Suspect]
     Active Substance: TEDUGLUTIDE
     Dosage: 0.04 MILLIGRAM/KILOGRAM
     Route: 065
     Dates: start: 20161027
  30. TEDUGLUTIDE [Suspect]
     Active Substance: TEDUGLUTIDE
     Dosage: 0.04 MILLIGRAM/KILOGRAM
     Route: 065
     Dates: start: 20161027
  31. TEDUGLUTIDE [Suspect]
     Active Substance: TEDUGLUTIDE
     Dosage: 0.04 MILLIGRAM/KILOGRAM
     Route: 065
     Dates: start: 20161027
  32. TEDUGLUTIDE [Suspect]
     Active Substance: TEDUGLUTIDE
     Dosage: 0.04 MILLIGRAM/KILOGRAM
     Route: 065
     Dates: start: 20161027
  33. TEDUGLUTIDE [Suspect]
     Active Substance: TEDUGLUTIDE
     Dosage: 2 MILLIGRAM
     Route: 065
     Dates: start: 20150918, end: 20150924
  34. TEDUGLUTIDE [Suspect]
     Active Substance: TEDUGLUTIDE
     Dosage: 2 MILLIGRAM
     Route: 065
     Dates: start: 20150918, end: 20150924
  35. TEDUGLUTIDE [Suspect]
     Active Substance: TEDUGLUTIDE
     Dosage: 2 MILLIGRAM
     Route: 065
     Dates: start: 20150918, end: 20150924
  36. TEDUGLUTIDE [Suspect]
     Active Substance: TEDUGLUTIDE
     Dosage: 2 MILLIGRAM
     Route: 065
     Dates: start: 20150918, end: 20150924
  37. TEDUGLUTIDE [Suspect]
     Active Substance: TEDUGLUTIDE
     Dosage: 2 MILLIGRAM, QD
     Route: 065
     Dates: start: 20151015, end: 201604
  38. TEDUGLUTIDE [Suspect]
     Active Substance: TEDUGLUTIDE
     Dosage: 2 MILLIGRAM, QD
     Route: 065
     Dates: start: 20151015, end: 201604
  39. TEDUGLUTIDE [Suspect]
     Active Substance: TEDUGLUTIDE
     Dosage: 2 MILLIGRAM, QD
     Route: 065
     Dates: start: 20151015, end: 201604
  40. TEDUGLUTIDE [Suspect]
     Active Substance: TEDUGLUTIDE
     Dosage: 2 MILLIGRAM, QD
     Route: 065
     Dates: start: 20151015, end: 201604
  41. TEDUGLUTIDE [Suspect]
     Active Substance: TEDUGLUTIDE
     Dosage: 2 MILLIGRAM, 3/WEEK
     Route: 065
     Dates: start: 20150925, end: 20151001
  42. TEDUGLUTIDE [Suspect]
     Active Substance: TEDUGLUTIDE
     Dosage: 2 MILLIGRAM, 3/WEEK
     Route: 065
     Dates: start: 20150925, end: 20151001
  43. TEDUGLUTIDE [Suspect]
     Active Substance: TEDUGLUTIDE
     Dosage: 2 MILLIGRAM, 3/WEEK
     Route: 065
     Dates: start: 20150925, end: 20151001
  44. TEDUGLUTIDE [Suspect]
     Active Substance: TEDUGLUTIDE
     Dosage: 2 MILLIGRAM, 3/WEEK
     Route: 065
     Dates: start: 20150925, end: 20151001
  45. TEDUGLUTIDE [Suspect]
     Active Substance: TEDUGLUTIDE
     Dosage: 2 MILLIGRAM, 4/WEEK
     Route: 065
     Dates: start: 20151002, end: 20151008
  46. TEDUGLUTIDE [Suspect]
     Active Substance: TEDUGLUTIDE
     Dosage: 2 MILLIGRAM, 4/WEEK
     Route: 065
     Dates: start: 20151002, end: 20151008
  47. TEDUGLUTIDE [Suspect]
     Active Substance: TEDUGLUTIDE
     Dosage: 2 MILLIGRAM, 4/WEEK
     Route: 065
     Dates: start: 20151002, end: 20151008
  48. TEDUGLUTIDE [Suspect]
     Active Substance: TEDUGLUTIDE
     Dosage: 2 MILLIGRAM, 4/WEEK
     Route: 065
     Dates: start: 20151002, end: 20151008
  49. TEDUGLUTIDE [Suspect]
     Active Substance: TEDUGLUTIDE
     Dosage: 2 MILLIGRAM, 4/WEEK
     Route: 065
     Dates: start: 20151009, end: 20151015
  50. TEDUGLUTIDE [Suspect]
     Active Substance: TEDUGLUTIDE
     Dosage: 2 MILLIGRAM, 4/WEEK
     Route: 065
     Dates: start: 20151009, end: 20151015
  51. TEDUGLUTIDE [Suspect]
     Active Substance: TEDUGLUTIDE
     Dosage: 2 MILLIGRAM, 4/WEEK
     Route: 065
     Dates: start: 20151009, end: 20151015
  52. TEDUGLUTIDE [Suspect]
     Active Substance: TEDUGLUTIDE
     Dosage: 2 MILLIGRAM, 4/WEEK
     Route: 065
     Dates: start: 20151009, end: 20151015
  53. TEDUGLUTIDE [Suspect]
     Active Substance: TEDUGLUTIDE
     Dosage: 2.5 MILLIGRAM, QD
     Route: 065
     Dates: start: 20160419, end: 20161026
  54. TEDUGLUTIDE [Suspect]
     Active Substance: TEDUGLUTIDE
     Dosage: 2.5 MILLIGRAM, QD
     Route: 065
     Dates: start: 20160419, end: 20161026
  55. TEDUGLUTIDE [Suspect]
     Active Substance: TEDUGLUTIDE
     Dosage: 2.5 MILLIGRAM, QD
     Route: 065
     Dates: start: 20160419, end: 20161026
  56. TEDUGLUTIDE [Suspect]
     Active Substance: TEDUGLUTIDE
     Dosage: 2.5 MILLIGRAM, QD
     Route: 065
     Dates: start: 20160419, end: 20161026
  57. TEDUGLUTIDE [Suspect]
     Active Substance: TEDUGLUTIDE
     Dosage: 2.7 MILLIGRAM
     Route: 005
     Dates: start: 20161027
  58. TEDUGLUTIDE [Suspect]
     Active Substance: TEDUGLUTIDE
     Dosage: 2.7 MILLIGRAM
     Route: 005
     Dates: start: 20161027
  59. TEDUGLUTIDE [Suspect]
     Active Substance: TEDUGLUTIDE
     Dosage: 2.7 MILLIGRAM
     Route: 005
     Dates: start: 20161027
  60. TEDUGLUTIDE [Suspect]
     Active Substance: TEDUGLUTIDE
     Dosage: 2.7 MILLIGRAM
     Route: 005
     Dates: start: 20161027
  61. TEDUGLUTIDE [Suspect]
     Active Substance: TEDUGLUTIDE
     Dosage: 2.7 MILLIGRAM, QD
     Route: 005
     Dates: start: 20161027, end: 201910
  62. TEDUGLUTIDE [Suspect]
     Active Substance: TEDUGLUTIDE
     Dosage: 2.7 MILLIGRAM, QD
     Route: 005
     Dates: start: 20161027, end: 201910
  63. TEDUGLUTIDE [Suspect]
     Active Substance: TEDUGLUTIDE
     Dosage: 2.7 MILLIGRAM, QD
     Route: 005
     Dates: start: 20161027, end: 201910
  64. TEDUGLUTIDE [Suspect]
     Active Substance: TEDUGLUTIDE
     Dosage: 2.7 MILLIGRAM, QD
     Route: 005
     Dates: start: 20161027, end: 201910
  65. TEDUGLUTIDE [Suspect]
     Active Substance: TEDUGLUTIDE
     Dosage: 4 UNK
     Route: 065
     Dates: start: 201907, end: 20190806
  66. TEDUGLUTIDE [Suspect]
     Active Substance: TEDUGLUTIDE
     Dosage: 4 UNK
     Route: 065
     Dates: start: 201907, end: 20190806
  67. TEDUGLUTIDE [Suspect]
     Active Substance: TEDUGLUTIDE
     Dosage: 4 UNK
     Route: 065
     Dates: start: 201907, end: 20190806
  68. TEDUGLUTIDE [Suspect]
     Active Substance: TEDUGLUTIDE
     Dosage: 4 UNK
     Route: 065
     Dates: start: 201907, end: 20190806
  69. TEDUGLUTIDE [Suspect]
     Active Substance: TEDUGLUTIDE
     Dosage: 3.6 MILLIGRAM, QD
     Route: 065
     Dates: start: 20190807, end: 20191002
  70. TEDUGLUTIDE [Suspect]
     Active Substance: TEDUGLUTIDE
     Dosage: 3.6 MILLIGRAM, QD
     Route: 065
     Dates: start: 20190807, end: 20191002
  71. TEDUGLUTIDE [Suspect]
     Active Substance: TEDUGLUTIDE
     Dosage: 3.6 MILLIGRAM, QD
     Route: 065
     Dates: start: 20190807, end: 20191002
  72. TEDUGLUTIDE [Suspect]
     Active Substance: TEDUGLUTIDE
     Dosage: 3.6 MILLIGRAM, QD
     Route: 065
     Dates: start: 20190807, end: 20191002
  73. TEDUGLUTIDE [Suspect]
     Active Substance: TEDUGLUTIDE
     Dosage: 3.8 MILLIGRAM, QD
     Route: 065
     Dates: start: 20191003
  74. TEDUGLUTIDE [Suspect]
     Active Substance: TEDUGLUTIDE
     Dosage: 3.8 MILLIGRAM, QD
     Route: 065
     Dates: start: 20191003
  75. TEDUGLUTIDE [Suspect]
     Active Substance: TEDUGLUTIDE
     Dosage: 3.8 MILLIGRAM, QD
     Route: 065
     Dates: start: 20191003
  76. TEDUGLUTIDE [Suspect]
     Active Substance: TEDUGLUTIDE
     Dosage: 3.8 MILLIGRAM, QD
     Route: 065
     Dates: start: 20191003
  77. NALOXONE HYDROCHLORIDE\TILIDINE HYDROCHLORIDE [Concomitant]
     Active Substance: NALOXONE HYDROCHLORIDE\TILIDINE HYDROCHLORIDE
     Indication: Spinal stenosis
     Route: 065
  78. PANTOPRAZOLE [Concomitant]
     Active Substance: PANTOPRAZOLE
     Indication: Oesophagitis
     Route: 065
  79. METAMIZOLE [Concomitant]
     Active Substance: METAMIZOLE
     Indication: Spinal stenosis
     Route: 065
  80. TINZAPARIN [Concomitant]
     Active Substance: TINZAPARIN
     Indication: Antiphospholipid syndrome
     Dosage: 999999.99 UNK
     Route: 065
     Dates: start: 20201021
  81. ENOXAPARIN SODIUM [Concomitant]
     Active Substance: ENOXAPARIN SODIUM
     Indication: Anticoagulant therapy
     Dosage: 9999999 UNK, BID
     Route: 065
     Dates: start: 20200526, end: 20200607
  82. VANCOMYCIN [Concomitant]
     Active Substance: VANCOMYCIN
     Indication: Antibiotic therapy
     Dosage: 9999999.99 UNK
     Route: 042
     Dates: start: 20200526, end: 20200607
  83. PENICILLIN [Concomitant]
     Active Substance: PENICILLIN
     Indication: Respiratory tract infection
     Dosage: 999 UNK
     Route: 065
     Dates: start: 201806, end: 201806

REACTIONS (2)
  - Vascular device infection [Recovered/Resolved]
  - Endocarditis [Recovered/Resolved]

NARRATIVE: CASE EVENT DATE: 20180401
